FAERS Safety Report 25589946 (Version 2)
Quarter: 2025Q3

REPORT INFORMATION
  Report Type: Spontaneous
  Country: EU (occurrence: EU)
  Receive Date: 20250722
  Receipt Date: 20250730
  Transmission Date: 20251020
  Serious: Yes (Congenital Anomaly, Other)
  Sender: MYLAN
  Company Number: EU-MYLANLABS-2025M1058372

PATIENT

DRUGS (1)
  1. ACETAMINOPHEN [Suspect]
     Active Substance: ACETAMINOPHEN
     Indication: Back pain

REACTIONS (4)
  - Ductus arteriosus stenosis foetal [Not Recovered/Not Resolved]
  - Foetal cardiac disorder [Not Recovered/Not Resolved]
  - Embryo-foetal toxicity [Not Recovered/Not Resolved]
  - Foetal exposure during pregnancy [Not Recovered/Not Resolved]
